FAERS Safety Report 18939484 (Version 1)
Quarter: 2021Q1

REPORT INFORMATION
  Report Type: Spontaneous
  Country: US (occurrence: US)
  Receive Date: 20210224
  Receipt Date: 20210224
  Transmission Date: 20210420
  Serious: Yes (Other)
  Sender: FDA-Public Use
  Company Number: US-BIOMARINAP-US-2021-135153

PATIENT
  Age: 59 Year
  Sex: Female

DRUGS (1)
  1. KUVAN [Suspect]
     Active Substance: SAPROPTERIN DIHYDROCHLORIDE
     Indication: PRODUCT USED FOR UNKNOWN INDICATION
     Route: 065

REACTIONS (7)
  - Multi-organ disorder [Unknown]
  - Nausea [Unknown]
  - Back pain [Unknown]
  - Blood pressure increased [Unknown]
  - Renal pain [Unknown]
  - Adrenocortical insufficiency acute [Unknown]
  - Chills [Unknown]

NARRATIVE: CASE EVENT DATE: 20201218
